FAERS Safety Report 18267577 (Version 2)
Quarter: 2020Q4

REPORT INFORMATION
  Report Type: Spontaneous
  Country: IT (occurrence: IT)
  Receive Date: 20200915
  Receipt Date: 20201029
  Transmission Date: 20210113
  Serious: Yes (Hospitalization)
  Sender: FDA-Public Use
  Company Number: NVSC2020IT249301

PATIENT
  Age: 58 Year
  Sex: Female

DRUGS (1)
  1. GILENYA [Suspect]
     Active Substance: FINGOLIMOD HYDROCHLORIDE
     Indication: MULTIPLE SCLEROSIS
     Dosage: 0.5 MG, QD
     Route: 048
     Dates: start: 20161109

REACTIONS (3)
  - Endometrial cancer [Recovering/Resolving]
  - Haemorrhage [Unknown]
  - Endometrial disorder [Unknown]

NARRATIVE: CASE EVENT DATE: 20200818
